FAERS Safety Report 7125815-0 (Version None)
Quarter: 2010Q4

REPORT INFORMATION
  Report Type: 
  Country: None (occurrence: None)
  Receive Date: 20101129
  Receipt Date: 20101123
  Transmission Date: 20110411
  Serious: Yes (Disabling)
  Sender: FDA-Public Use
  Company Number: B0686468A

PATIENT
  Sex: Female
  Weight: 38 kg

DRUGS (6)
  1. SERETIDE [Suspect]
     Indication: CHRONIC OBSTRUCTIVE PULMONARY DISEASE
     Route: 055
     Dates: start: 20080701, end: 20100801
  2. SPIRIVA [Suspect]
     Indication: CHRONIC OBSTRUCTIVE PULMONARY DISEASE
     Route: 055
     Dates: start: 20080701, end: 20100801
  3. KALEORID [Concomitant]
     Dosage: 750MG PER DAY
     Route: 048
  4. PERINDOPRIL ERBUMINE [Concomitant]
     Dosage: 2.5MG PER DAY
     Route: 048
  5. ESTRADIOL [Concomitant]
     Dosage: 2MG PER DAY
  6. ELTROXIN [Concomitant]
     Dosage: 100MG PER DAY
     Route: 048

REACTIONS (6)
  - BLISTER [None]
  - DRUG INTERACTION [None]
  - MUSCLE SPASMS [None]
  - ONYCHOMADESIS [None]
  - ULCER [None]
  - WOUND [None]
